FAERS Safety Report 9158042 (Version 2)
Quarter: 2013Q2

REPORT INFORMATION
  Report Type: Spontaneous
  Country: JP (occurrence: JP)
  Receive Date: 20130312
  Receipt Date: 20130418
  Transmission Date: 20140414
  Serious: Yes (Other)
  Sender: FDA-Public Use
  Company Number: JP-ROCHE-1199388

PATIENT
  Age: 5 Year
  Sex: Male
  Weight: 15 kg

DRUGS (3)
  1. TAMIFLU [Suspect]
     Indication: INFLUENZA
     Dosage: DOSAGE IS UNCERTAIN
     Route: 048
     Dates: start: 20130301, end: 20130303
  2. TAMIFLU [Suspect]
     Dosage: DOSAGE IS UNCERTAIN
     Route: 048
     Dates: start: 20130304, end: 20130304
  3. PERIACTIN [Concomitant]
     Dosage: DOSAGE IS UNCERTAIN
     Route: 048

REACTIONS (2)
  - Body temperature decreased [Recovered/Resolved]
  - Abnormal behaviour [Recovered/Resolved]
